FAERS Safety Report 19063786 (Version 2)
Quarter: 2021Q2

REPORT INFORMATION
  Report Type: Spontaneous
  Country: US (occurrence: US)
  Receive Date: 20210326
  Receipt Date: 20210407
  Transmission Date: 20210717
  Serious: Yes (Other)
  Sender: FDA-Public Use
  Company Number: US-GW PHARMA-202103USGW01230

PATIENT

DRUGS (5)
  1. EPIDIOLEX [Suspect]
     Active Substance: CANNABIDIOL
     Indication: EPILEPSY
     Dosage: 730 MILLIGRAM, BID (INCREASED TO MAINTAIN DOSE)
     Route: 048
     Dates: start: 2018
  2. VIMPAT [Concomitant]
     Active Substance: LACOSAMIDE
     Indication: PRODUCT USED FOR UNKNOWN INDICATION
     Dosage: 200 MILLIGRAM, BID
     Route: 065
     Dates: end: 2021
  3. VIMPAT [Concomitant]
     Active Substance: LACOSAMIDE
     Dosage: WEANING OFF BY 50MG/WEEK (BEGINNING THIS WEEK)
     Route: 065
     Dates: start: 202103
  4. EPIDIOLEX [Suspect]
     Active Substance: CANNABIDIOL
     Indication: EPILEPSY
     Dosage: 670 MILLIGRAM, BID
     Route: 048
     Dates: start: 2018, end: 2018
  5. SABRIL [Concomitant]
     Active Substance: VIGABATRIN
     Indication: PRODUCT USED FOR UNKNOWN INDICATION
     Dosage: UNK (SHIPPED ON 19 MAR 2021)
     Route: 065
     Dates: start: 202103

REACTIONS (1)
  - Seizure [Not Recovered/Not Resolved]
